FAERS Safety Report 5594785-9 (Version None)
Quarter: 2008Q1

REPORT INFORMATION
  Report Type: 
  Country: None (occurrence: None)
  Receive Date: 20080117
  Receipt Date: 20080114
  Transmission Date: 20080703
  Serious: Yes (Other)
  Sender: FDA-Public Use
  Company Number: A0703704A

PATIENT
  Sex: Male

DRUGS (1)
  1. AVANDIA [Suspect]
     Dates: start: 20070101

REACTIONS (3)
  - ANAEMIA [None]
  - BLOOD TEST ABNORMAL [None]
  - PLATELET COUNT DECREASED [None]
